FAERS Safety Report 25661552 (Version 1)
Quarter: 2025Q3

REPORT INFORMATION
  Report Type: Spontaneous
  Country: JP (occurrence: JP)
  Receive Date: 20250808
  Receipt Date: 20250808
  Transmission Date: 20251020
  Serious: Yes (Other)
  Sender: ELI LILLY AND COMPANY
  Company Number: JP-ELI_LILLY_AND_COMPANY-JP202508004889AA

PATIENT
  Age: 77 Year
  Sex: Female
  Weight: 47 kg

DRUGS (4)
  1. RETEVMO [Suspect]
     Active Substance: SELPERCATINIB
     Indication: Non-small cell lung cancer stage IV
     Dosage: 160 MG, BID
     Route: 048
     Dates: start: 20220112, end: 20220222
  2. RETEVMO [Suspect]
     Active Substance: SELPERCATINIB
     Dosage: 80 MG, BID
     Route: 048
     Dates: start: 20220329, end: 202411
  3. AMLODIPINE [Concomitant]
     Active Substance: AMLODIPINE BESYLATE
     Indication: Hypertension
  4. URSODIOL [Concomitant]
     Active Substance: URSODIOL
     Indication: Hepatic function abnormal

REACTIONS (6)
  - Pericardial effusion [Recovering/Resolving]
  - Right ventricular diastolic collapse [Unknown]
  - Bundle branch block left [Recovered/Resolved]
  - Ascites [Unknown]
  - Hypoalbuminaemia [Unknown]
  - Anaemia [Unknown]

NARRATIVE: CASE EVENT DATE: 20230601
